FAERS Safety Report 25823961 (Version 1)
Quarter: 2025Q3

REPORT INFORMATION
  Report Type: Spontaneous
  Country: EU (occurrence: EU)
  Receive Date: 20250919
  Receipt Date: 20250919
  Transmission Date: 20251020
  Serious: Yes (Other)
  Sender: NOVO NORDISK
  Company Number: None

PATIENT
  Age: 49 Year
  Sex: Female
  Weight: 83 kg

DRUGS (1)
  1. WEGOVY [Suspect]
     Active Substance: SEMAGLUTIDE
     Indication: Product used for unknown indication
     Dates: start: 20250509

REACTIONS (3)
  - Optic ischaemic neuropathy [Unknown]
  - Visual impairment [Recovering/Resolving]
  - Papilloedema [Unknown]

NARRATIVE: CASE EVENT DATE: 20250620
